FAERS Safety Report 8259856-7 (Version None)
Quarter: 2012Q2

REPORT INFORMATION
  Report Type: 
  Country: None (occurrence: None)
  Receive Date: 20120404
  Receipt Date: 20120327
  Transmission Date: 20120825
  Serious: Yes (Hospitalization)
  Sender: FDA-Public Use
  Company Number: US-GLAXOSMITHKLINE-A0967683A

PATIENT
  Age: 53 Year
  Sex: Female

DRUGS (4)
  1. COUMADIN [Concomitant]
     Dosage: 4MG AS DIRECTED
  2. FLOLAN [Suspect]
     Indication: PULMONARY ARTERIAL HYPERTENSION
     Dosage: 46.4NGKM SEE DOSAGE TEXT
     Route: 042
     Dates: start: 19991101
  3. VIAGRA [Concomitant]
     Dosage: 50MG THREE TIMES PER DAY
  4. TRACLEER [Concomitant]
     Dosage: 125MG TWICE PER DAY

REACTIONS (2)
  - GASTROINTESTINAL HAEMORRHAGE [None]
  - CARDIAC FAILURE [None]
